FAERS Safety Report 9348344 (Version 1)
Quarter: 2013Q2

REPORT INFORMATION
  Report Type: Spontaneous
  Country: GB (occurrence: GB)
  Receive Date: 20130614
  Receipt Date: 20130614
  Transmission Date: 20140414
  Serious: Yes (Other)
  Sender: FDA-Public Use
  Company Number: GB-PFIZER INC-2013134106

PATIENT
  Age: 26 Year
  Sex: 0

DRUGS (30)
  1. TRAMADOL HCL [Suspect]
     Indication: PAIN
     Dosage: UNK
  2. TRAMADOL HCL [Suspect]
     Indication: MYALGIA
  3. TRAMADOL HCL [Suspect]
     Indication: OSTEOPOROSIS
  4. TRAMADOL HCL [Suspect]
     Indication: OSTEOARTHRITIS
  5. TRAMADOL HCL [Suspect]
     Indication: RHEUMATOID ARTHRITIS
  6. TRAMADOL HCL [Suspect]
     Indication: HYPERMOBILITY SYNDROME
  7. NAPROXEN SODIUM [Suspect]
     Indication: PAIN
     Dosage: UNK
  8. NAPROXEN SODIUM [Suspect]
     Indication: MYALGIA
  9. NAPROXEN SODIUM [Suspect]
     Indication: OSTEOPOROSIS
  10. NAPROXEN SODIUM [Suspect]
     Indication: OSTEOARTHRITIS
  11. NAPROXEN SODIUM [Suspect]
     Indication: RHEUMATOID ARTHRITIS
  12. NAPROXEN SODIUM [Suspect]
     Indication: HYPERMOBILITY SYNDROME
  13. DICLOFENAC [Suspect]
     Indication: PAIN
     Dosage: UNK
  14. DICLOFENAC [Suspect]
     Indication: MYALGIA
  15. DICLOFENAC [Suspect]
     Indication: OSTEOPOROSIS
  16. DICLOFENAC [Suspect]
     Indication: OSTEOARTHRITIS
  17. DICLOFENAC [Suspect]
     Indication: RHEUMATOID ARTHRITIS
  18. DICLOFENAC [Suspect]
     Indication: HYPERMOBILITY SYNDROME
  19. CO-CODAMOL [Suspect]
     Indication: MYALGIA
     Dosage: UNK
  20. CO-CODAMOL [Suspect]
     Indication: OSTEOPOROSIS
  21. CO-CODAMOL [Suspect]
     Indication: OSTEOARTHRITIS
  22. CO-CODAMOL [Suspect]
     Indication: RHEUMATOID ARTHRITIS
  23. CO-CODAMOL [Suspect]
     Indication: HYPERMOBILITY SYNDROME
  24. CO-CODAMOL [Suspect]
     Indication: PAIN
  25. LEFLUNOMIDE [Suspect]
     Indication: PAIN
     Dosage: UNK
  26. LEFLUNOMIDE [Suspect]
     Indication: RHEUMATOID ARTHRITIS
  27. LEFLUNOMIDE [Suspect]
     Indication: HYPERMOBILITY SYNDROME
  28. LEFLUNOMIDE [Suspect]
     Indication: OSTEOARTHRITIS
  29. LEFLUNOMIDE [Suspect]
     Indication: OSTEOPOROSIS
  30. LEFLUNOMIDE [Suspect]
     Indication: MYALGIA

REACTIONS (2)
  - Suicidal ideation [Unknown]
  - Drug ineffective [Unknown]
